FAERS Safety Report 15158935 (Version 2)
Quarter: 2018Q4

REPORT INFORMATION
  Report Type: Spontaneous
  Country: GR (occurrence: GR)
  Receive Date: 20180718
  Receipt Date: 20181031
  Transmission Date: 20190204
  Serious: Yes (Other)
  Sender: FDA-Public Use
  Company Number: GR-MYLANLABS-2018M1051458

PATIENT
  Age: 71 Year
  Sex: Male

DRUGS (3)
  1. PEMETREXED. [Concomitant]
     Active Substance: PEMETREXED
     Indication: MESOTHELIOMA
     Dosage: UNK
  2. CARBOPLATIN. [Concomitant]
     Active Substance: CARBOPLATIN
     Indication: MESOTHELIOMA
     Dosage: UNK
  3. MOXIFLOXACIN. [Suspect]
     Active Substance: MOXIFLOXACIN
     Indication: PRODUCT USED FOR UNKNOWN INDICATION
     Dosage: UNK

REACTIONS (4)
  - Clostridium difficile colitis [Recovering/Resolving]
  - Diarrhoea [Unknown]
  - White blood cell count increased [Unknown]
  - Haemodynamic instability [Unknown]
